FAERS Safety Report 5035189-7 (Version None)
Quarter: 2006Q2

REPORT INFORMATION
  Report Type: 
  Country: None (occurrence: None)
  Receive Date: 20060622
  Receipt Date: 20060609
  Transmission Date: 20061013
  Serious: Yes (Other)
  Sender: FDA-Public Use
  Company Number: TCI2006A02197

PATIENT
  Age: 6 Decade
  Sex: Female

DRUGS (2)
  1. ACTOS [Suspect]
     Indication: DIABETES MELLITUS NON-INSULIN-DEPENDENT
     Dosage: 15 MG (15 MG, 1 IN 1D), ORAL
     Route: 048
     Dates: start: 20050111, end: 20050513
  2. GLUTAMEAL (GLICLAZIDE) [Concomitant]

REACTIONS (3)
  - CARDIAC FAILURE [None]
  - CARDIOMEGALY [None]
  - PLEURAL EFFUSION [None]
